FAERS Safety Report 4752356-8 (Version None)
Quarter: 2005Q3

REPORT INFORMATION
  Report Type: 
  Country: None (occurrence: None)
  Receive Date: 20050824
  Receipt Date: 20050824
  Transmission Date: 20060218
  Serious: No
  Sender: FDA-Public Use
  Company Number: None

PATIENT
  Sex: Male
  Weight: 86.1834 kg

DRUGS (2)
  1. AMIODARONE [Suspect]
     Indication: ATRIAL FIBRILLATION
     Dosage: 400 MG EVERY 8 HOURS PO
     Route: 048
     Dates: start: 20050812, end: 20050816
  2. AMIODARONE [Suspect]
     Dosage: 400 MG ONCE A DAY PO
     Route: 048
     Dates: start: 20050817, end: 20050818

REACTIONS (1)
  - TRANSAMINASES INCREASED [None]
